FAERS Safety Report 23322980 (Version 1)
Quarter: 2023Q4

REPORT INFORMATION
  Report Type: Spontaneous
  Country: MY (occurrence: MY)
  Receive Date: 20231220
  Receipt Date: 20231220
  Transmission Date: 20240110
  Serious: Yes (Other)
  Sender: FDA-Public Use
  Company Number: MY-LUNDBECK-DKLU3060480

PATIENT
  Age: 43 Year
  Sex: Female
  Weight: 50 kg

DRUGS (2)
  1. LEXAPRO [Suspect]
     Active Substance: ESCITALOPRAM OXALATE
     Indication: Product used for unknown indication
     Dosage: FORM: UNKNOWN
     Route: 065
  2. BRINTELLIX [Suspect]
     Active Substance: VORTIOXETINE HYDROBROMIDE
     Indication: Generalised anxiety disorder
     Dosage: DAILY DOSE: 5.0 MG, TOTAL: 105.0 MG, FREQUENCY: AT NIGHT
     Route: 048
     Dates: start: 20230318, end: 20230331

REACTIONS (2)
  - Pruritus [Recovered/Resolved with Sequelae]
  - Sexual dysfunction [Unknown]

NARRATIVE: CASE EVENT DATE: 20230325
